FAERS Safety Report 4902934-8 (Version None)
Quarter: 2006Q1

REPORT INFORMATION
  Report Type: 
  Country: None (occurrence: None)
  Receive Date: 20060207
  Receipt Date: 20060126
  Transmission Date: 20060701
  Serious: Yes (Life-Threatening, Other)
  Sender: FDA-Public Use
  Company Number: DE-JNJFOC-20060105912

PATIENT
  Age: 34 Year
  Sex: Male

DRUGS (3)
  1. HALDOL [Suspect]
     Route: 048
  2. HALDOL [Suspect]
     Indication: SCHIZOAFFECTIVE DISORDER
     Route: 048
  3. LORAZEPAM [Suspect]
     Indication: SCHIZOAFFECTIVE DISORDER
     Route: 048

REACTIONS (2)
  - DYSKINESIA [None]
  - LOSS OF CONSCIOUSNESS [None]
